FAERS Safety Report 8588777-5 (Version None)
Quarter: 2012Q3

REPORT INFORMATION
  Report Type: 
  Country: None (occurrence: None)
  Receive Date: 20120813
  Receipt Date: 20120807
  Transmission Date: 20120928
  Serious: Yes (Hospitalization)
  Sender: FDA-Public Use
  Company Number: PHHY2012JP059787

PATIENT
  Age: 57 Year
  Sex: Male

DRUGS (3)
  1. LOXOPROFEN SODIUM [Suspect]
     Indication: ARTHRALGIA
     Route: 048
  2. VOLTAREN [Suspect]
     Indication: ARTHRALGIA
     Dosage: 75 MG, DAILY
     Route: 048
     Dates: start: 20110701, end: 20111022
  3. BLESIN [Concomitant]
     Indication: ARTHRALGIA
     Route: 048

REACTIONS (2)
  - NEPHROTIC SYNDROME [None]
  - TUBULOINTERSTITIAL NEPHRITIS [None]
